FAERS Safety Report 25211804 (Version 1)
Quarter: 2025Q2

REPORT INFORMATION
  Report Type: Spontaneous
  Country: PE (occurrence: PE)
  Receive Date: 20250418
  Receipt Date: 20250418
  Transmission Date: 20250717
  Serious: Yes (Other)
  Sender: AMGEN
  Company Number: PE-PFIZER INC-PV202500044856

PATIENT
  Age: 67 Year
  Sex: Male

DRUGS (1)
  1. ENBREL [Suspect]
     Active Substance: ETANERCEPT
     Indication: Psoriasis
     Route: 058
     Dates: start: 202312, end: 202501

REACTIONS (3)
  - Colon cancer [Not Recovered/Not Resolved]
  - Polyp [Unknown]
  - Buccal polyp [Unknown]

NARRATIVE: CASE EVENT DATE: 20230101
